FAERS Safety Report 7553041-X (Version None)
Quarter: 2011Q2

REPORT INFORMATION
  Report Type: 
  Country: None (occurrence: None)
  Receive Date: 20110616
  Receipt Date: 20110608
  Transmission Date: 20111010
  Serious: Yes (Other)
  Sender: FDA-Public Use
  Company Number: US-ABBOTT-11P-163-0729885-00

PATIENT
  Sex: Female
  Weight: 83.99 kg

DRUGS (1)
  1. HUMIRA [Suspect]
     Indication: RHEUMATOID ARTHRITIS
     Route: 058
     Dates: start: 20110502, end: 20110509

REACTIONS (10)
  - RASH MACULAR [None]
  - ERYTHEMA [None]
  - INJECTION SITE REACTION [None]
  - URTICARIA [None]
  - RASH GENERALISED [None]
  - PAIN [None]
  - PRURITUS [None]
  - HYPERSENSITIVITY [None]
  - INJECTION SITE DISCOLOURATION [None]
  - FATIGUE [None]
